FAERS Safety Report 9212669 (Version 1)
Quarter: 2013Q2

REPORT INFORMATION
  Report Type: Spontaneous
  Country: US (occurrence: US)
  Receive Date: 20130405
  Receipt Date: 20130405
  Transmission Date: 20140414
  Serious: No
  Sender: FDA-Public Use
  Company Number: US-BIOGENIDEC-2013BI029508

PATIENT
  Sex: Male

DRUGS (1)
  1. TYSABRI [Suspect]
     Indication: MULTIPLE SCLEROSIS
     Route: 042
     Dates: start: 20090825, end: 20130204

REACTIONS (3)
  - Hypoaesthesia [Recovered/Resolved]
  - Visual acuity reduced [Not Recovered/Not Resolved]
  - Coordination abnormal [Not Recovered/Not Resolved]
